FAERS Safety Report 6512329-1 (Version None)
Quarter: 2009Q4

REPORT INFORMATION
  Report Type: 
  Country: None (occurrence: None)
  Receive Date: 20091222
  Receipt Date: 20090701
  Transmission Date: 20100525
  Serious: No
  Sender: FDA-Public Use
  Company Number: US-ASTRAZENECA-2009UW18446

PATIENT
  Age: 81 Year
  Sex: Female
  Weight: 59.9 kg

DRUGS (4)
  1. CRESTOR [Suspect]
     Indication: BLOOD CHOLESTEROL INCREASED
     Route: 048
     Dates: start: 20090501, end: 20090601
  2. JANTIVAN [Concomitant]
  3. ENALAPRIL MALEATE [Concomitant]
  4. DIGOXIN [Concomitant]

REACTIONS (3)
  - FATIGUE [None]
  - GAIT DISTURBANCE [None]
  - MYALGIA [None]
